FAERS Safety Report 6295524-9 (Version None)
Quarter: 2009Q3

REPORT INFORMATION
  Report Type: 
  Country: None (occurrence: None)
  Receive Date: 20090731
  Receipt Date: 20081204
  Transmission Date: 20100115
  Serious: Yes (Death)
  Sender: FDA-Public Use
  Company Number: LTI2008A00170

PATIENT
  Age: 50 Year
  Sex: Female

DRUGS (1)
  1. ACTOS [Suspect]
     Dosage: ORAL
     Route: 048
     Dates: end: 20030101

REACTIONS (1)
  - CARDIAC FAILURE [None]
